FAERS Safety Report 7611030-0 (Version None)
Quarter: 2011Q3

REPORT INFORMATION
  Report Type: 
  Country: None (occurrence: None)
  Receive Date: 20110715
  Receipt Date: 20110701
  Transmission Date: 20111222
  Serious: Yes (Other)
  Sender: FDA-Public Use
  Company Number: CH-JNJFOC-20110603850

PATIENT
  Age: 53 Year
  Sex: Male

DRUGS (10)
  1. NIFEDIPINE [Concomitant]
     Route: 065
  2. MICARDIS HCT [Concomitant]
     Route: 048
  3. DIAMICRON [Concomitant]
     Indication: DIABETES MELLITUS
     Route: 048
  4. CALCIMAGON D3 [Concomitant]
     Indication: OSTEOPOROSIS
     Route: 048
  5. METFORMIN HCL [Concomitant]
     Indication: DIABETES MELLITUS
     Route: 048
  6. NOVOLOG [Concomitant]
     Indication: DIABETES MELLITUS
     Dosage: 30:40 IU
     Route: 058
  7. SPIRICORT [Concomitant]
     Indication: EOSINOPHILIC FASCIITIS
     Route: 048
  8. BONIVA [Concomitant]
     Indication: OSTEOPOROSIS
     Route: 042
  9. PANTOPRAZOLE [Concomitant]
     Route: 065
  10. REMICADE [Suspect]
     Indication: EOSINOPHILIC FASCIITIS
     Route: 042
     Dates: start: 20110601, end: 20110615

REACTIONS (2)
  - CORONARY ARTERY DISEASE [None]
  - OFF LABEL USE [None]
